FAERS Safety Report 8437285-0 (Version None)
Quarter: 2012Q2

REPORT INFORMATION
  Report Type: 
  Country: None (occurrence: None)
  Receive Date: 20120614
  Receipt Date: 20120305
  Transmission Date: 20120825
  Serious: No
  Sender: FDA-Public Use
  Company Number: US-AMGEN-USASP2011038962

PATIENT
  Age: 46 Year
  Sex: Female
  Weight: 69 kg

DRUGS (6)
  1. ATIVAN [Concomitant]
  2. FISH OIL [Concomitant]
  3. M.V.I. [Concomitant]
  4. LAC-HYDRIN [Concomitant]
  5. CALCIUM [Concomitant]
  6. XGEVA [Suspect]
     Indication: METASTASES TO BONE
     Dosage: 120 MG, Q4WK
     Dates: start: 20110701

REACTIONS (1)
  - TOOTHACHE [None]
